FAERS Safety Report 21016281 (Version 1)
Quarter: 2022Q2

REPORT INFORMATION
  Report Type: Spontaneous
  Country: US (occurrence: None)
  Receive Date: 20220627
  Receipt Date: 20220627
  Transmission Date: 20220721
  Serious: Yes (Hospitalization)
  Sender: FDA-Public Use
  Company Number: None

PATIENT
  Age: 88 Year
  Sex: Male

DRUGS (1)
  1. RIVAROXABAN [Suspect]
     Active Substance: RIVAROXABAN
     Indication: Pulmonary embolism
     Dates: start: 20170315

REACTIONS (4)
  - Haemorrhage [None]
  - Anaemia [None]
  - Erosive oesophagitis [None]
  - Mallory-Weiss syndrome [None]

NARRATIVE: CASE EVENT DATE: 20220301
